FAERS Safety Report 19179909 (Version 1)
Quarter: 2021Q2

REPORT INFORMATION
  Report Type: Spontaneous
  Country: US (occurrence: US)
  Receive Date: 20210426
  Receipt Date: 20210426
  Transmission Date: 20210717
  Serious: Yes (Hospitalization)
  Sender: FDA-Public Use
  Company Number: None

PATIENT
  Age: 78 Year
  Sex: Female
  Weight: 78.3 kg

DRUGS (16)
  1. ANASTRAZOLE 1MG [Concomitant]
     Active Substance: ANASTROZOLE
  2. FUROSEMIDE 80MG [Concomitant]
  3. HYDROXYZINE 10MG [Concomitant]
  4. MAGNESIUM OXIDE 400MG [Concomitant]
     Active Substance: MAGNESIUM OXIDE
  5. ONDANSETRON 8MG [Concomitant]
     Active Substance: ONDANSETRON
  6. PANTOPRAZOLE 40MG [Concomitant]
     Active Substance: PANTOPRAZOLE SODIUM
  7. DIPHENOXYLATE?ATROPINE 2.5?0.025MG [Concomitant]
  8. LIOTHYRONINE 5MCG [Concomitant]
     Active Substance: LIOTHYRONINE
  9. METFORMIN 500MG [Concomitant]
     Active Substance: METFORMIN HYDROCHLORIDE
  10. PERCOCET [Concomitant]
     Active Substance: ACETAMINOPHEN\OXYCODONE HYDROCHLORIDE
  11. POTASSIUM CHLORIDE 20MEQ [Concomitant]
     Active Substance: POTASSIUM CHLORIDE
  12. CALCITRIOL 0.25MCG [Concomitant]
  13. VITAMIN B12 100MCG [Concomitant]
  14. CENTRUM SILVER [Concomitant]
     Active Substance: MINERALS\VITAMINS
  15. VERZENIO [Suspect]
     Active Substance: ABEMACICLIB
     Indication: BREAST CANCER FEMALE
     Route: 048
     Dates: start: 20210327
  16. CARVEDILOL 6.25MG [Concomitant]
     Active Substance: CARVEDILOL

REACTIONS (1)
  - Cardiac failure congestive [None]

NARRATIVE: CASE EVENT DATE: 20210417
